FAERS Safety Report 5132164-9 (Version None)
Quarter: 2006Q4

REPORT INFORMATION
  Report Type: 
  Country: None (occurrence: None)
  Receive Date: 20061017
  Receipt Date: 20061006
  Transmission Date: 20070319
  Serious: Yes (Other)
  Sender: FDA-Public Use
  Company Number: WAES 0610USA04667

PATIENT
  Age: 35 Year
  Sex: Male
  Weight: 120.6568 kg

DRUGS (16)
  1. DECADRON [Suspect]
     Dosage: 0.75 MG/DAILY/PO
     Route: 048
     Dates: start: 20060604, end: 20060604
  2. DECADRON [Suspect]
     Dosage: 0.75 MG/DAILY/PO
     Route: 048
     Dates: start: 20060605, end: 20060606
  3. DECADRON [Suspect]
     Dosage: 0.75 MG/DAILY/PO
     Route: 048
     Dates: start: 20060607, end: 20060607
  4. DECADRON [Suspect]
     Dosage: 0.75 MG/DAILY/PO
     Route: 048
     Dates: start: 20060625, end: 20060625
  5. DECADRON [Suspect]
     Dosage: 0.75 MG/DAILY/PO
     Route: 048
     Dates: start: 20060626, end: 20060627
  6. DECADRON [Suspect]
     Dosage: 0.75 MG/DAILY/PO
     Route: 048
     Dates: start: 20060628, end: 20060628
  7. KETOCONAZOLE [Suspect]
     Dosage: 1000 + 1600 + 400 + 1000 + 16000 MG/DAILY/PO
     Route: 048
     Dates: start: 20060604, end: 20060604
  8. KETOCONAZOLE [Suspect]
     Dosage: 1000 + 1600 + 400 + 1000 + 16000 MG/DAILY/PO
     Route: 048
     Dates: start: 20060605, end: 20060606
  9. KETOCONAZOLE [Suspect]
     Dosage: 1000 + 1600 + 400 + 1000 + 16000 MG/DAILY/PO
     Route: 048
     Dates: start: 20060607, end: 20060607
  10. KETOCONAZOLE [Suspect]
     Dosage: 1000 + 1600 + 400 + 1000 + 16000 MG/DAILY/PO
     Route: 048
     Dates: start: 20060625, end: 20060625
  11. KETOCONAZOLE [Suspect]
     Dosage: 1000 + 1600 + 400 + 1000 + 16000 MG/DAILY/PO
     Route: 048
     Dates: start: 20060626, end: 20060627
  12. KETOCONAZOLE [Suspect]
     Dosage: 1000 + 1600 + 400 + 1000 + 16000 MG/DAILY/PO
     Route: 048
     Dates: start: 20060628, end: 20060628
  13. ANDROGEL [Suspect]
     Dosage: 5 GM/DAILY/TOP
     Route: 061
     Dates: start: 20060625, end: 20060627
  14. ANDROGEL [Suspect]
     Dosage: 5 GM/DAILY/TOP
     Route: 061
     Dates: start: 20060604
  15. GEL PLACEBO (UNSPECIFIED) UNK [Suspect]
     Dosage: 7.5 + 2.5 GM/DAILY/TOP
     Route: 061
     Dates: start: 20060604, end: 20060606
  16. GEL PLACEBO (UNSPECIFIED) UNK [Suspect]
     Dosage: 7.5 + 2.5 GM/DAILY/TOP
     Route: 061
     Dates: start: 20060625, end: 20060627

REACTIONS (2)
  - BLOOD GLUCOSE INCREASED [None]
  - HEPATIC ENZYME INCREASED [None]
